FAERS Safety Report 5741237-9 (Version None)
Quarter: 2008Q2

REPORT INFORMATION
  Report Type: 
  Country: None (occurrence: None)
  Receive Date: 20080516
  Receipt Date: 20080508
  Transmission Date: 20081010
  Serious: Yes (Other)
  Sender: FDA-Public Use
  Company Number: US-PFIZER INC-2008040812

PATIENT
  Age: 23 Year
  Sex: Male

DRUGS (5)
  1. SERTRALINE [Interacting]
     Indication: DEPRESSIVE SYMPTOM
  2. RISPERIDONE [Suspect]
     Indication: DEPRESSIVE SYMPTOM
     Dosage: TEXT:1 MG NR AT BEDTIME
  3. ARIPIPRAZOLE [Suspect]
     Indication: DEPRESSIVE SYMPTOM
  4. OLANZAPINE [Suspect]
     Indication: DEPRESSIVE SYMPTOM
     Dosage: DAILY DOSE:10MG-TEXT: NR, AT BEDTIME
  5. QUETIAPINE FUMARATE [Suspect]
     Indication: DEPRESSIVE SYMPTOM
     Dosage: DAILY DOSE:600MG-TEXT:NR, AT BEDTIME

REACTIONS (4)
  - AKATHISIA [None]
  - DRUG INTERACTION [None]
  - ERECTION INCREASED [None]
  - PRIAPISM [None]
